FAERS Safety Report 5885305-X (Version None)
Quarter: 2008Q3

REPORT INFORMATION
  Report Type: 
  Country: None (occurrence: None)
  Receive Date: 20080915
  Receipt Date: 20080915
  Transmission Date: 20090109
  Serious: Yes (Life-Threatening, Hospitalization)
  Sender: FDA-Public Use
  Company Number: None

PATIENT
  Sex: Female
  Weight: 104.3273 kg

DRUGS (1)
  1. DESMOPRESSIN ACETATE [Suspect]
     Indication: ENURESIS
     Dosage: ONE SPRAY EACH NOSTRIL AT BEDTIME NASAL
     Route: 045
     Dates: start: 20080728, end: 20080810

REACTIONS (5)
  - BLOOD SODIUM DECREASED [None]
  - CONFUSIONAL STATE [None]
  - GRAND MAL CONVULSION [None]
  - HALLUCINATION [None]
  - VOMITING [None]
